FAERS Safety Report 10191610 (Version 1)
Quarter: 2014Q2

REPORT INFORMATION
  Report Type: Spontaneous
  Country: PT (occurrence: None)
  Receive Date: 20140521
  Receipt Date: 20140521
  Transmission Date: 20141212
  Serious: Yes (Congenital Anomaly)
  Sender: FDA-Public Use
  Company Number: ADR-2014-00846

PATIENT
  Age: 1 Day
  Sex: Male
  Weight: 3 kg

DRUGS (7)
  1. BACLOFEN [Suspect]
  2. OXYBUTYNIN [Suspect]
  3. ENOXAPARIN [Suspect]
  4. OMEPRAZOLE [Suspect]
  5. LAXATIVE [Suspect]
  6. NITROFURANTOIN [Suspect]
  7. CEFTAZIDIME [Suspect]

REACTIONS (3)
  - Caesarean section [None]
  - Cytogenetic abnormality [None]
  - Exposure during pregnancy [None]
